FAERS Safety Report 9681325 (Version 1)
Quarter: 2013Q4

REPORT INFORMATION
  Report Type: Spontaneous
  Country: US (occurrence: None)
  Receive Date: 20131108
  Receipt Date: 20131108
  Transmission Date: 20140711
  Serious: Yes (Disabling)
  Sender: FDA-Public Use
  Company Number: None

PATIENT
  Age: 38 Year
  Sex: Female
  Weight: 49.9 kg

DRUGS (1)
  1. NITROFURANTOIN [Suspect]
     Indication: URINARY TRACT INFECTION
     Dosage: TAKEN BY MOUTH?QTY:14
     Route: 048

REACTIONS (4)
  - Pruritus generalised [None]
  - Erythema [None]
  - Skin swelling [None]
  - Skin discomfort [None]
